FAERS Safety Report 13563480 (Version 1)
Quarter: 2017Q2

REPORT INFORMATION
  Report Type: Spontaneous
  Country: US (occurrence: US)
  Receive Date: 20170519
  Receipt Date: 20170519
  Transmission Date: 20170830
  Serious: Yes (Other)
  Sender: FDA-Public Use
  Company Number: None

PATIENT
  Age: 57 Year
  Sex: Female
  Weight: 46.35 kg

DRUGS (8)
  1. CIPROFLOXACIN HCL 500 MG TAB [Suspect]
     Active Substance: CIPROFLOXACIN HYDROCHLORIDE
     Indication: GASTROINTESTINAL BACTERIAL INFECTION
     Dosage: ?          QUANTITY:14 TABLET(S);?EVERY 12 HOURAS ORAL
     Route: 048
     Dates: start: 20170501, end: 20170508
  2. SOLARAY POWDER MULTIDOPHILUS [Concomitant]
  3. NATUREMADE VITAMIN E [Concomitant]
  4. CALCIUM ASPARTATE ANHYDROUS [Concomitant]
  5. VITAPULSE [Concomitant]
  6. PRIMAL FORCE CURCUMIN [Concomitant]
  7. NATUREMADE VITAMIN C [Concomitant]
  8. TRADER JOE^S ACTIVE 50+ MULTIVITAMIN [Concomitant]

REACTIONS (3)
  - Ocular hyperaemia [None]
  - Eyelid ptosis [None]
  - Erythema of eyelid [None]

NARRATIVE: CASE EVENT DATE: 20170507
